FAERS Safety Report 12288261 (Version 1)
Quarter: 2016Q2

REPORT INFORMATION
  Report Type: Spontaneous
  Country: IL (occurrence: IL)
  Receive Date: 20160420
  Receipt Date: 20160420
  Transmission Date: 20160815
  Serious: Yes (Life-Threatening, Hospitalization)
  Sender: FDA-Public Use
  Company Number: IL-B.I. PHARMACEUTICALS,INC./RIDGEFIELD-2016-BI-24554IL

PATIENT
  Age: 8 Decade
  Sex: Female

DRUGS (1)
  1. PRADAXA [Suspect]
     Active Substance: DABIGATRAN ETEXILATE MESYLATE
     Indication: PRODUCT USED FOR UNKNOWN INDICATION
     Dosage: 220 MG
     Route: 048

REACTIONS (5)
  - Empyema [Recovered/Resolved with Sequelae]
  - Dyspnoea [Unknown]
  - Pulmonary haemorrhage [Unknown]
  - Fall [Unknown]
  - Back injury [Not Recovered/Not Resolved]
